FAERS Safety Report 8353704-2 (Version None)
Quarter: 2012Q2

REPORT INFORMATION
  Report Type: 
  Country: None (occurrence: None)
  Receive Date: 20120511
  Receipt Date: 20110815
  Transmission Date: 20120825
  Serious: No
  Sender: FDA-Public Use
  Company Number: US-GLAXOSMITHKLINE-A0943780A

PATIENT
  Age: 87 Year
  Sex: Female
  Weight: 69.5 kg

DRUGS (2)
  1. TYKERB [Suspect]
     Indication: PRODUCT USED FOR UNKNOWN INDICATION
     Dosage: 1500MG PER DAY
     Route: 065
     Dates: start: 20110808
  2. FEMARA [Suspect]
     Indication: PRODUCT USED FOR UNKNOWN INDICATION
     Dosage: 2.5MG PER DAY
     Route: 065
     Dates: end: 20110801

REACTIONS (5)
  - INSOMNIA [None]
  - DRY SKIN [None]
  - FEELING ABNORMAL [None]
  - MUSCLE SPASMS [None]
  - MENTAL IMPAIRMENT [None]
